FAERS Safety Report 26170473 (Version 1)
Quarter: 2025Q4

REPORT INFORMATION
  Report Type: Report from Study
  Country: EU (occurrence: EU)
  Receive Date: 20251217
  Receipt Date: 20251217
  Transmission Date: 20260118
  Serious: Yes (Death, Congenital Anomaly)
  Sender: JOHNSON AND JOHNSON
  Company Number: EU-JNJFOC-20251218536

PATIENT
  Sex: Female

DRUGS (20)
  1. SIMPONI [Suspect]
     Active Substance: GOLIMUMAB
     Indication: Rheumatoid arthritis
     Route: 058
  2. SIMPONI [Suspect]
     Active Substance: GOLIMUMAB
     Indication: Ankylosing spondylitis
  3. SIMPONI [Suspect]
     Active Substance: GOLIMUMAB
     Indication: Spondyloarthropathy
  4. SIMPONI [Suspect]
     Active Substance: GOLIMUMAB
     Indication: Axial spondyloarthritis
  5. SIMPONI [Suspect]
     Active Substance: GOLIMUMAB
     Indication: Arthritis enteropathic
  6. SIMPONI [Suspect]
     Active Substance: GOLIMUMAB
     Indication: Psoriatic arthropathy
  7. SIMPONI [Suspect]
     Active Substance: GOLIMUMAB
     Indication: Juvenile idiopathic arthritis
  8. SIMPONI [Suspect]
     Active Substance: GOLIMUMAB
     Indication: Seronegative arthritis
  9. SIMPONI [Suspect]
     Active Substance: GOLIMUMAB
     Indication: Oligoarthritis
  10. SIMPONI [Suspect]
     Active Substance: GOLIMUMAB
     Indication: SAPHO syndrome
  11. SIMPONI [Suspect]
     Active Substance: GOLIMUMAB
     Indication: Uveitis
  12. SIMPONI [Suspect]
     Active Substance: GOLIMUMAB
     Indication: Arthritis reactive
  13. SIMPONI [Suspect]
     Active Substance: GOLIMUMAB
     Indication: Juvenile spondyloarthritis
  14. SIMPONI [Suspect]
     Active Substance: GOLIMUMAB
     Indication: Behcet^s syndrome
  15. SIMPONI [Suspect]
     Active Substance: GOLIMUMAB
     Indication: Vasculitis
  16. SIMPONI [Suspect]
     Active Substance: GOLIMUMAB
     Indication: Still^s disease
  17. SIMPONI [Suspect]
     Active Substance: GOLIMUMAB
     Indication: Juvenile spondyloarthritis
  18. SIMPONI [Suspect]
     Active Substance: GOLIMUMAB
     Indication: Overlap syndrome
  19. SIMPONI [Suspect]
     Active Substance: GOLIMUMAB
     Indication: Sarcoidosis
  20. SIMPONI [Suspect]
     Active Substance: GOLIMUMAB
     Indication: Polymyalgia rheumatica

REACTIONS (30)
  - Poisoning [Fatal]
  - Surgery [Fatal]
  - Gastrointestinal disorder [Fatal]
  - Nervous system disorder [Fatal]
  - Respiratory disorder [Fatal]
  - Injury [Fatal]
  - Social problem [Fatal]
  - Neoplasm [Fatal]
  - General physical health deterioration [Fatal]
  - Cardiac disorder [Fatal]
  - Renal disorder [Fatal]
  - Angiopathy [Fatal]
  - Mental disorder [Fatal]
  - Blood disorder [Fatal]
  - Hepatobiliary disease [Fatal]
  - Metabolic disorder [Fatal]
  - Infection [Fatal]
  - Investigation [Fatal]
  - Congenital cardiovascular anomaly [Unknown]
  - Reproductive tract disorder [Unknown]
  - Exposure during pregnancy [Unknown]
  - Skin disorder [Unknown]
  - Muscle disorder [Unknown]
  - Eye disorder [Unknown]
  - Inner ear disorder [Unknown]
  - Endocrine disorder [Unknown]
  - Pregnancy [Unknown]
  - Immune system disorder [Unknown]
  - Drug ineffective [Unknown]
  - Device issue [Unknown]
